FAERS Safety Report 23179474 (Version 1)
Quarter: 2023Q4

REPORT INFORMATION
  Report Type: Spontaneous
  Country: PL (occurrence: PL)
  Receive Date: 20231113
  Receipt Date: 20231113
  Transmission Date: 20240110
  Serious: Yes (Other)
  Sender: FDA-Public Use
  Company Number: PL-TAKEDA-2023TUS108974

PATIENT
  Age: 71 Year
  Sex: Male

DRUGS (6)
  1. PONATINIB [Suspect]
     Active Substance: PONATINIB
     Indication: Chronic myeloid leukaemia
     Dosage: 45 MILLIGRAM, QD
     Route: 065
     Dates: start: 20220817
  2. PONATINIB [Suspect]
     Active Substance: PONATINIB
     Indication: Chloroma
  3. CYTARABINE [Suspect]
     Active Substance: CYTARABINE
     Indication: Chronic myeloid leukaemia
     Dosage: 100 MILLIGRAM/SQ. METER
     Route: 065
     Dates: start: 202210
  4. CYTARABINE [Suspect]
     Active Substance: CYTARABINE
     Indication: Chloroma
  5. DAUNORUBICIN [Suspect]
     Active Substance: DAUNORUBICIN
     Indication: Chronic myeloid leukaemia
     Dosage: 60 MILLIGRAM/SQ. METER
     Route: 065
     Dates: start: 202210
  6. DAUNORUBICIN [Suspect]
     Active Substance: DAUNORUBICIN
     Indication: Chloroma

REACTIONS (2)
  - Chronic myeloid leukaemia [Unknown]
  - Chloroma [Unknown]
